FAERS Safety Report 10404293 (Version 1)
Quarter: 2014Q1

REPORT INFORMATION
  Report Type: Spontaneous
  Country: US (occurrence: None)
  Receive Date: 20131226
  Receipt Date: 20131226
  Transmission Date: 20141002
  Serious: Yes (Life-Threatening)
  Sender: FDA-Public Use
  Company Number: PHEH2012US014972

PATIENT
  Age: 62 Year
  Sex: Female
  Weight: 60.8 kg

DRUGS (13)
  1. EXTAVIA [Suspect]
     Indication: MULTIPLE SCLEROSIS
     Route: 058
     Dates: start: 201207
  2. LITHIUM (LITHIUM) [Concomitant]
  3. PROPRANOLOL (PROPRANOLOL) [Concomitant]
  4. SIMVASTATIN (SIMVASTATIN) [Concomitant]
  5. TYLENOL (PARACETAMOL) [Concomitant]
  6. CALCIUM (CALCIUM) [Concomitant]
  7. BACLOFEN (BACLOFEN) [Concomitant]
  8. SOLU-MEDROL (METHYLPREDNISOLONE SODIUM SUCCINATE) [Concomitant]
  9. OMEPRAZOLE (OMEPRAZOLE) [Concomitant]
  10. METHYLPHENIDATE (METHYLPHENIDATE) [Concomitant]
  11. LAMOTRIGINE (LAMOTRIGINE) [Concomitant]
  12. FLUOXETINE (FLUOXETINE) [Concomitant]
  13. MINOCYCLINE HYDROCHLORIDE (MINOCYCLINE HYDROCHLORIDE) [Concomitant]

REACTIONS (6)
  - Suicidal ideation [None]
  - Injection site erythema [None]
  - Injection site mass [None]
  - Incorrect dose administered [None]
  - Depression [None]
  - Crying [None]
